FAERS Safety Report 9476392 (Version 1)
Quarter: 2013Q3

REPORT INFORMATION
  Report Type: Spontaneous
  Country: US (occurrence: None)
  Receive Date: 20130823
  Receipt Date: 20130823
  Transmission Date: 20140515
  Serious: No
  Sender: FDA-Public Use
  Company Number: None

PATIENT
  Age: 82 Year
  Sex: Male
  Weight: 78.8 kg

DRUGS (1)
  1. ALFA INTERFERON 2B [Suspect]
     Dates: end: 20130315

REACTIONS (1)
  - Blood phosphorus decreased [None]
